FAERS Safety Report 4298949-6 (Version None)
Quarter: 2004Q1

REPORT INFORMATION
  Report Type: 
  Country: None (occurrence: None)
  Receive Date: 20040217
  Receipt Date: 20040203
  Transmission Date: 20041129
  Serious: Yes (Hospitalization)
  Sender: FDA-Public Use
  Company Number: 2004-BP-00950YA

PATIENT
  Age: 63 Year
  Sex: Male

DRUGS (2)
  1. OMIX (TAMSULOSIN HYDROCHLORIDE) (TAMSULOSI) (NR) [Suspect]
     Indication: BENIGN PROSTATIC HYPERPLASIA
     Dosage: 4 MG
     Route: 048
  2. CIALIS [Suspect]
     Indication: FEMALE SEXUAL AROUSAL DISORDER
     Route: 048

REACTIONS (1)
  - DERMATITIS EXFOLIATIVE [None]
